FAERS Safety Report 7693573-7 (Version None)
Quarter: 2011Q3

REPORT INFORMATION
  Report Type: 
  Country: None (occurrence: None)
  Receive Date: 20110819
  Receipt Date: 20110809
  Transmission Date: 20111222
  Serious: Yes (Other)
  Sender: FDA-Public Use
  Company Number: PHHY2011TW72620

PATIENT

DRUGS (2)
  1. DEXAMETHASONE [Suspect]
     Indication: BRONCHOPULMONARY DYSPLASIA
     Dosage: UNK
  2. FUROSEMIDE [Suspect]
     Indication: BRONCHOPULMONARY DYSPLASIA

REACTIONS (1)
  - NEPHROLITHIASIS [None]
